FAERS Safety Report 23911345 (Version 1)
Quarter: 2024Q2

REPORT INFORMATION
  Report Type: Spontaneous
  Country: US (occurrence: US)
  Receive Date: 20240528
  Receipt Date: 20240528
  Transmission Date: 20240716
  Serious: No
  Sender: FDA-Public Use
  Company Number: US-Emergent Biosolutions-24000072

PATIENT

DRUGS (7)
  1. CNJ-016 [Suspect]
     Active Substance: HUMAN VACCINIA VIRUS IMMUNE GLOBULIN
     Indication: Monkeypox
     Dosage: UNK
     Route: 042
     Dates: start: 2022
  2. BRINCIDOFOVIR [Suspect]
     Active Substance: BRINCIDOFOVIR
     Indication: Monkeypox
     Dosage: UNK
     Route: 065
     Dates: start: 2022
  3. TECOVIRIMAT [Concomitant]
     Active Substance: TECOVIRIMAT
     Indication: Monkeypox
     Dosage: UNK
     Route: 048
     Dates: start: 2022
  4. TECOVIRIMAT [Concomitant]
     Active Substance: TECOVIRIMAT
     Dosage: UNK
     Route: 042
     Dates: start: 2022
  5. CIDOFOVIR [Concomitant]
     Active Substance: CIDOFOVIR
     Indication: Monkeypox
     Dosage: UNK
     Route: 061
     Dates: start: 2022
  6. CIDOFOVIR [Concomitant]
     Active Substance: CIDOFOVIR
     Dosage: UNK
     Route: 026
     Dates: start: 2022
  7. CIDOFOVIR [Concomitant]
     Active Substance: CIDOFOVIR
     Dosage: UNK
     Route: 065
     Dates: start: 2022

REACTIONS (1)
  - Off label use [Recovered/Resolved]

NARRATIVE: CASE EVENT DATE: 20220101
